FAERS Safety Report 6914728-2 (Version None)
Quarter: 2010Q3

REPORT INFORMATION
  Report Type: 
  Country: None (occurrence: None)
  Receive Date: 20100809
  Receipt Date: 20100729
  Transmission Date: 20110219
  Serious: Yes (Hospitalization)
  Sender: FDA-Public Use
  Company Number: AR-AMGEN-QUU426841

PATIENT
  Sex: Female

DRUGS (9)
  1. ENBREL [Suspect]
     Indication: RHEUMATOID ARTHRITIS
     Route: 058
     Dates: start: 20091118
  2. BISOPROLOL [Concomitant]
     Indication: HYPERTENSION
  3. SERETIDE [Concomitant]
     Dosage: UNSPECIFIED DOSE
     Route: 055
  4. ASPIRIN [Concomitant]
     Indication: HYPERTENSION
  5. ALPRAZOLAM [Concomitant]
  6. INSULIN [Concomitant]
     Dosage: ONE TOUCH UNSPECIFIED DOSE
  7. OMEPRAZOLE [Concomitant]
     Indication: PROPHYLAXIS AGAINST GASTROINTESTINAL ULCER
  8. LOSARTAN POSTASSIUM [Concomitant]
     Indication: HYPERTENSION
  9. SPIRIVA [Concomitant]

REACTIONS (6)
  - CARDIAC ARREST [None]
  - CARDIAC FAILURE [None]
  - CARDIOPULMONARY FAILURE [None]
  - CORONARY ARTERY OCCLUSION [None]
  - NOSOCOMIAL INFECTION [None]
  - PNEUMONIA [None]
